FAERS Safety Report 8401760-5 (Version None)
Quarter: 2012Q2

REPORT INFORMATION
  Report Type: 
  Country: None (occurrence: None)
  Receive Date: 20120601
  Receipt Date: 20120530
  Transmission Date: 20120825
  Serious: Yes (Hospitalization)
  Sender: FDA-Public Use
  Company Number: US-BAYER-2011-073215

PATIENT
  Age: 30 Year
  Sex: Female
  Weight: 50.794 kg

DRUGS (8)
  1. YAZ [Suspect]
     Indication: MENSTRUAL CYCLE MANAGEMENT
     Dosage: UNK
     Dates: start: 20070101, end: 20090101
  2. CELEXA [Concomitant]
     Route: 048
  3. XANAX [Concomitant]
     Route: 048
  4. NAPROXEN [Concomitant]
     Dosage: 500 MG, BID
     Route: 048
     Dates: start: 20090713
  5. NEXIUM [Concomitant]
     Indication: DYSPEPSIA
     Dosage: 40 MG, EVERY MORNING
     Route: 048
  6. MOTRIN [Concomitant]
  7. VISTARIL [Concomitant]
     Dosage: 25 MG, UNK
     Route: 048
  8. TORADOL [Concomitant]

REACTIONS (9)
  - ABDOMINAL PAIN [None]
  - ANHEDONIA [None]
  - ANXIETY [None]
  - EMOTIONAL DISTRESS [None]
  - BILIARY DYSKINESIA [None]
  - INJURY [None]
  - GALLBLADDER DISORDER [None]
  - GENERAL PHYSICAL HEALTH DETERIORATION [None]
  - PAIN [None]
